FAERS Safety Report 7852256-0 (Version None)
Quarter: 2011Q4

REPORT INFORMATION
  Report Type: 
  Country: None (occurrence: None)
  Receive Date: 20111026
  Receipt Date: 20111012
  Transmission Date: 20120403
  Serious: Yes (Hospitalization, Other)
  Sender: FDA-Public Use
  Company Number: US-ELI_LILLY_AND_COMPANY-US201110003430

PATIENT
  Sex: Male

DRUGS (13)
  1. FORTEO [Suspect]
     Indication: OSTEOPOROSIS
     Dosage: 20 UG, QD
     Dates: start: 20100201
  2. GLYBURIDE [Concomitant]
     Dosage: 5 MG, QD
  3. NORVASC [Concomitant]
     Dosage: 10 MG, QD
  4. IMDUR [Concomitant]
     Dosage: 30 MG, QD
  5. METFORMIN HCL [Concomitant]
     Indication: DIABETES MELLITUS
     Dosage: 500 MG, BID
  6. MAG-OX [Concomitant]
     Dosage: 400 MG, QD
  7. ASPIRIN [Concomitant]
     Dosage: 81 MG, QD
  8. NEXIUM [Concomitant]
     Dosage: 40 MG, QD
  9. LOPRESSOR [Concomitant]
     Dosage: 25 MG, QD
  10. FORTEO [Suspect]
     Dosage: 20 UG, QOD
  11. ESCITALOPRAM [Concomitant]
     Dosage: 10 MG, QD
  12. PLAVIX [Concomitant]
     Dosage: 75 MG, QD
  13. LIPITOR [Concomitant]
     Dosage: 20 MG, QD

REACTIONS (6)
  - DIZZINESS [None]
  - CARDIAC DISORDER [None]
  - BLOOD POTASSIUM ABNORMAL [None]
  - DIABETES MELLITUS [None]
  - NAUSEA [None]
  - INAPPROPRIATE SCHEDULE OF DRUG ADMINISTRATION [None]
